FAERS Safety Report 7472978-3 (Version None)
Quarter: 2011Q2

REPORT INFORMATION
  Report Type: 
  Country: None (occurrence: None)
  Receive Date: 20110511
  Receipt Date: 20110506
  Transmission Date: 20111010
  Serious: Yes (Life-Threatening, Hospitalization, Disabling, Other)
  Sender: FDA-Public Use
  Company Number: PHHY2010US60570

PATIENT
  Age: 24 Year
  Sex: Female
  Weight: 25 kg

DRUGS (13)
  1. IMURAN [Concomitant]
     Indication: RENAL TRANSPLANT
     Dosage: 100 MG, DAILY
     Route: 042
     Dates: start: 19910210
  2. SIMVASTATIN [Concomitant]
     Indication: BLOOD CHOLESTEROL INCREASED
     Dosage: 40 MG DAILY
     Dates: start: 20080101
  3. ACTONEL [Concomitant]
     Indication: OSTEOPOROSIS
     Dosage: 150 MG DAILY
     Dates: start: 20020101
  4. RAMIPRIL [Concomitant]
     Dosage: 2.5 MG, DAILY
     Dates: start: 20080630
  5. SIMVASTATIN [Concomitant]
     Dosage: 20 MG DAILY
     Dates: start: 20080630
  6. ALLOPURINOL [Concomitant]
     Indication: GOUT
     Dosage: 100 MG DAILY
     Dates: start: 20040101
  7. PREDNISONE [Concomitant]
     Dosage: 5 MG DAILY
     Route: 048
     Dates: start: 19960101
  8. ARANESP [Concomitant]
     Dosage: 25 MCG DAILY
     Dates: start: 20080630
  9. NEORAL [Suspect]
     Indication: RENAL TRANSPLANT
     Dosage: 150 MG, DAILY
     Route: 048
     Dates: start: 19910210
  10. NEORAL [Suspect]
     Dosage: 125 MG, DAILY
     Route: 048
     Dates: start: 19990101
  11. IMURAN [Concomitant]
     Dosage: 25 MG DAILY
     Route: 042
     Dates: start: 20080121
  12. RAMIPRIL [Concomitant]
     Indication: HYPERTENSION
     Dosage: 5 MG DAILY
     Dates: start: 20020101
  13. PREDNISONE [Concomitant]
     Indication: PROPHYLAXIS AGAINST TRANSPLANT REJECTION
     Dosage: 50 MG, DAILY
     Route: 048
     Dates: start: 19910210

REACTIONS (8)
  - MALIGNANT MELANOMA [None]
  - MOLLUSCUM CONTAGIOSUM [None]
  - PHARYNGEAL OEDEMA [None]
  - SKIN CANCER [None]
  - PNEUMONIA [None]
  - INFECTION [None]
  - CERVIX CARCINOMA [None]
  - CLOSTRIDIAL INFECTION [None]
